FAERS Safety Report 7367918-1 (Version None)
Quarter: 2011Q1

REPORT INFORMATION
  Report Type: 
  Country: None (occurrence: None)
  Receive Date: 20110322
  Receipt Date: 20110315
  Transmission Date: 20110831
  Serious: Yes (Death, Other)
  Sender: FDA-Public Use
  Company Number: US-RB-023031-11

PATIENT
  Sex: Male

DRUGS (7)
  1. COMBIVIR [Concomitant]
     Indication: HIV INFECTION
     Dosage: DOSING DETAILS UNKNOWN
     Route: 065
     Dates: end: 20110201
  2. NORVIR [Concomitant]
     Indication: HIV INFECTION
     Dosage: DOSING DETAILS UNKNOWN
     Route: 065
     Dates: end: 20110201
  3. MULTI-VITAMIN [Concomitant]
     Indication: HIV WASTING SYNDROME
     Dosage: DOSING DETAILS UNKNOWN
     Route: 065
     Dates: end: 20110201
  4. SUBOXONE [Suspect]
     Indication: DRUG DEPENDENCE
     Dosage: SUBLINGUAL FILM
     Route: 060
     Dates: start: 20101212, end: 20110201
  5. REYATAZ [Concomitant]
     Indication: HIV INFECTION
     Dosage: DOSING DETAILS UNKNOWN
     Route: 065
     Dates: end: 20110201
  6. ASPIRIN [Concomitant]
     Indication: PROPHYLAXIS
     Dosage: DOSING DETAILS UNKNOWN
     Route: 065
     Dates: end: 20110201
  7. HYDROCHLOROTHIAZIDE [Concomitant]
     Indication: HYPERTENSION
     Dosage: DOSING DETAILS UNKNOWN
     Route: 065
     Dates: end: 20110201

REACTIONS (1)
  - CEREBRAL HAEMORRHAGE [None]
